FAERS Safety Report 5879087-5 (Version None)
Quarter: 2008Q3

REPORT INFORMATION
  Report Type: 
  Country: None (occurrence: None)
  Receive Date: 20080912
  Receipt Date: 20080812
  Transmission Date: 20090109
  Serious: No
  Sender: FDA-Public Use
  Company Number: US-BAYER-200817416NA

PATIENT
  Sex: Female
  Weight: 88 kg

DRUGS (2)
  1. MIRENA [Suspect]
     Indication: CONTRACEPTION
     Route: 015
     Dates: start: 20070701
  2. LEXAPRO [Concomitant]

REACTIONS (4)
  - AMENORRHOEA [None]
  - ARTHRALGIA [None]
  - PYREXIA [None]
  - VAGINAL HAEMORRHAGE [None]
